FAERS Safety Report 11505051 (Version 1)
Quarter: 2015Q3

REPORT INFORMATION
  Report Type: Spontaneous
  Country: US (occurrence: None)
  Receive Date: 20150914
  Receipt Date: 20150914
  Transmission Date: 20151125
  Serious: Yes (Hospitalization)
  Sender: FDA-Public Use
  Company Number: None

PATIENT
  Age: 46 Year
  Sex: Male
  Weight: 149.46 kg

DRUGS (1)
  1. BUPRENORPHINE HCL/NALOXONE [Suspect]
     Active Substance: BUPRENORPHINE HYDROCHLORIDE\NALOXONE
     Indication: DRUG DEPENDENCE
     Route: 060

REACTIONS (5)
  - Ear swelling [None]
  - Eye swelling [None]
  - Rash erythematous [None]
  - Rash [None]
  - Pharyngeal oedema [None]
